FAERS Safety Report 18706396 (Version 1)
Quarter: 2021Q1

REPORT INFORMATION
  Report Type: Spontaneous
  Country: US (occurrence: US)
  Receive Date: 20210106
  Receipt Date: 20210106
  Transmission Date: 20210419
  Serious: Yes (Hospitalization)
  Sender: FDA-Public Use
  Company Number: None

PATIENT
  Age: 84 Year
  Sex: Female
  Weight: 116.7 kg

DRUGS (2)
  1. 5?FLUOROURACIL (5?FU) (19893) [Suspect]
     Active Substance: FLUOROURACIL
     Indication: CARDIAC FAILURE CONGESTIVE
     Dates: end: 20201008
  2. LEUCOVORIN CALCIUM. [Suspect]
     Active Substance: LEUCOVORIN CALCIUM
     Dates: end: 20201008

REACTIONS (3)
  - Oxygen saturation decreased [None]
  - Dyspnoea [None]
  - Cardiac failure congestive [None]

NARRATIVE: CASE EVENT DATE: 20201108
